FAERS Safety Report 11674290 (Version 1)
Quarter: 2015Q4

REPORT INFORMATION
  Report Type: Spontaneous
  Country: US (occurrence: US)
  Receive Date: 20151027
  Receipt Date: 20151027
  Transmission Date: 20160304
  Serious: Yes (Other)
  Sender: FDA-Public Use
  Company Number: US-ELI_LILLY_AND_COMPANY-US201006007581

PATIENT
  Sex: Female

DRUGS (10)
  1. LYRICA [Concomitant]
     Active Substance: PREGABALIN
     Dosage: 100 MG, EACH EVENING
  2. REMERON [Concomitant]
     Active Substance: MIRTAZAPINE
     Dosage: 30 MG, 2/D
  3. FORTEO [Suspect]
     Active Substance: TERIPARATIDE
     Dosage: 20 UG, DAILY (1/D)
     Dates: start: 20090515, end: 20100615
  4. CALCITROL [Concomitant]
     Active Substance: CALCITRIOL
     Dosage: 0.25 UG, DAILY (1/D)
  5. CYMBALTA [Concomitant]
     Active Substance: DULOXETINE HYDROCHLORIDE
     Dosage: 60 MG, DAILY (1/D)
  6. COLACE [Concomitant]
     Active Substance: DOCUSATE SODIUM
     Dosage: 100 MG, 2/D
  7. DAILY-VITE [Concomitant]
     Dosage: UNK, DAILY (1/D)
  8. EFFEXOR XR [Concomitant]
     Active Substance: VENLAFAXINE HYDROCHLORIDE
     Dosage: 150 MG, 2/D
  9. MIDODRINE [Concomitant]
     Active Substance: MIDODRINE
     Dosage: 10 MG, OTHER
  10. ADDERALL [Concomitant]
     Active Substance: AMPHETAMINE ASPARTATE\AMPHETAMINE SULFATE\DEXTROAMPHETAMINE SACCHARATE\DEXTROAMPHETAMINE SULFATE
     Dosage: UNK, AS NEEDED

REACTIONS (5)
  - Syncope [Unknown]
  - Orthostatic hypotension [Not Recovered/Not Resolved]
  - Dizziness [Not Recovered/Not Resolved]
  - Mobility decreased [Recovering/Resolving]
  - Blood pressure decreased [Unknown]
